FAERS Safety Report 7482935-9 (Version None)
Quarter: 2011Q2

REPORT INFORMATION
  Report Type: 
  Country: None (occurrence: None)
  Receive Date: 20110516
  Receipt Date: 20110516
  Transmission Date: 20111010
  Serious: Yes (Hospitalization)
  Sender: FDA-Public Use
  Company Number: FR-ABBOTT-11P-056-0721109-00

PATIENT
  Sex: Male
  Weight: 91 kg

DRUGS (5)
  1. HUMIRA [Suspect]
     Indication: PSORIATIC ARTHROPATHY
     Route: 058
     Dates: start: 20110105, end: 20110212
  2. METFORMIN HCL [Concomitant]
     Indication: TYPE 2 DIABETES MELLITUS
     Route: 048
     Dates: end: 20110301
  3. HUMIRA [Suspect]
     Indication: PSORIASIS
  4. LEFLUNOMIDE [Suspect]
     Indication: PSORIATIC ARTHROPATHY
     Route: 048
     Dates: start: 20101001, end: 20110301
  5. MELPHALAN HYDROCHLORIDE [Suspect]
     Indication: PSORIATIC ARTHROPATHY
     Route: 048
     Dates: end: 20110301

REACTIONS (7)
  - DIVERTICULUM INTESTINAL [None]
  - DERMATOSIS [None]
  - ABDOMINAL PAIN [None]
  - LARGE INTESTINE PERFORATION [None]
  - CLOSTRIDIAL INFECTION [None]
  - PSORIASIS [None]
  - PERITONITIS [None]
